FAERS Safety Report 10866112 (Version 1)
Quarter: 2015Q1

REPORT INFORMATION
  Report Type: Spontaneous
  Country: US (occurrence: None)
  Receive Date: 20150219
  Receipt Date: 20150219
  Transmission Date: 20150721
  Serious: Yes (Disabling)
  Sender: FDA-Public Use
  Company Number: None

PATIENT
  Age: 76 Year
  Sex: Female
  Weight: 49.9 kg

DRUGS (5)
  1. PRAVASTATIN [Suspect]
     Active Substance: PRAVASTATIN\PRAVASTATIN SODIUM
     Indication: BLOOD CHOLESTEROL INCREASED
     Dosage: 20 MG 1 TABLET ONCE A DAY BY MOUTH
     Route: 048
     Dates: start: 20141224, end: 20150104
  2. CLINDAMYCIN [Concomitant]
     Active Substance: CLINDAMYCIN\CLINDAMYCIN PHOSPHATE
  3. SULFA OINTMENT [Concomitant]
  4. PENICILLINS [Concomitant]
     Active Substance: PENICILLIN
  5. TURMERIC [Concomitant]
     Active Substance: TURMERIC

REACTIONS (9)
  - Pain in extremity [None]
  - Vomiting [None]
  - Mobility decreased [None]
  - Muscular weakness [None]
  - Discomfort [None]
  - Decreased appetite [None]
  - Dyspepsia [None]
  - Weight bearing difficulty [None]
  - Flatulence [None]

NARRATIVE: CASE EVENT DATE: 20150104
